FAERS Safety Report 24986118 (Version 4)
Quarter: 2025Q3

REPORT INFORMATION
  Report Type: Report from Study
  Country: US (occurrence: US)
  Receive Date: 20250219
  Receipt Date: 20250809
  Transmission Date: 20251020
  Serious: Yes (Hospitalization, Other)
  Sender: ALEXION PHARMACEUTICALS
  Company Number: US-AstraZeneca-CH-00806262A

PATIENT
  Sex: Female

DRUGS (1)
  1. ULTOMIRIS [Suspect]
     Active Substance: RAVULIZUMAB-CWVZ
     Indication: Myasthenia gravis
     Route: 065

REACTIONS (6)
  - Myasthenia gravis crisis [Unknown]
  - Loss of consciousness [Unknown]
  - Immunodeficiency common variable [Unknown]
  - Discomfort [Unknown]
  - Symptom recurrence [Unknown]
  - Dyspnoea [Unknown]
